FAERS Safety Report 19208646 (Version 3)
Quarter: 2021Q4

REPORT INFORMATION
  Report Type: Report from Study
  Country: IN (occurrence: IN)
  Receive Date: 20210503
  Receipt Date: 20211102
  Transmission Date: 20220303
  Serious: Yes (Other)
  Sender: FDA-Public Use
  Company Number: NVSC2020IN307804

PATIENT
  Age: 67 Year
  Sex: Female

DRUGS (4)
  1. SACUBITRIL\VALSARTAN [Suspect]
     Active Substance: SACUBITRIL\VALSARTAN
     Indication: Cardiac failure chronic
     Dosage: 0.5 MG (50 MG), BID
     Route: 048
     Dates: start: 20201009, end: 20201023
  2. SACUBITRIL\VALSARTAN [Suspect]
     Active Substance: SACUBITRIL\VALSARTAN
     Dosage: 0.5 MG (50 MG), BID
     Route: 048
     Dates: start: 20201012, end: 20201023
  3. SACUBITRIL\VALSARTAN [Suspect]
     Active Substance: SACUBITRIL\VALSARTAN
     Dosage: 0.5 MG (100 MG), BID
     Route: 048
     Dates: start: 20201024
  4. SACUBITRIL\VALSARTAN [Suspect]
     Active Substance: SACUBITRIL\VALSARTAN
     Dosage: 0.5 DF (50 MG), BID
     Route: 048

REACTIONS (7)
  - Hyperthyroidism [Unknown]
  - Blood uric acid increased [Unknown]
  - Chills [Recovered/Resolved]
  - Wrong technique in product usage process [Unknown]
  - Product prescribing error [Unknown]
  - Incorrect dose administered [Unknown]
  - Product dose omission issue [Recovered/Resolved]

NARRATIVE: CASE EVENT DATE: 20201009
